FAERS Safety Report 22032687 (Version 1)
Quarter: 2023Q1

REPORT INFORMATION
  Report Type: Spontaneous
  Country: JP (occurrence: None)
  Receive Date: 20230224
  Receipt Date: 20230224
  Transmission Date: 20230418
  Serious: Yes (Other)
  Sender: FDA-Public Use
  Company Number: 2023A042821

PATIENT
  Age: 62 Year
  Sex: Female

DRUGS (2)
  1. TAGRISSO [Suspect]
     Active Substance: OSIMERTINIB
     Indication: Non-small cell lung cancer
     Route: 048
     Dates: start: 20220907, end: 2022
  2. AZUNOL [Concomitant]

REACTIONS (8)
  - Uterine cancer [Unknown]
  - Madarosis [Unknown]
  - Hypersensitivity [Unknown]
  - Dry skin [Unknown]
  - Diarrhoea [Unknown]
  - Pyrexia [Unknown]
  - Presbyopia [Unknown]
  - Myopia [Unknown]

NARRATIVE: CASE EVENT DATE: 20220101
